FAERS Safety Report 7763245-9 (Version None)
Quarter: 2011Q3

REPORT INFORMATION
  Report Type: 
  Country: None (occurrence: None)
  Receive Date: 20110920
  Receipt Date: 20110916
  Transmission Date: 20111222
  Serious: Yes (Death, Other)
  Sender: FDA-Public Use
  Company Number: PHEH2009US07474

PATIENT
  Sex: Female

DRUGS (4)
  1. TAMOXIFEN CITRATE [Concomitant]
  2. HERCEPTIN [Concomitant]
  3. TAXOL [Concomitant]
  4. ZOMETA [Suspect]

REACTIONS (7)
  - DEATH [None]
  - GENERAL PHYSICAL HEALTH DETERIORATION [None]
  - OSTEONECROSIS OF JAW [None]
  - PAIN [None]
  - ANHEDONIA [None]
  - DISABILITY [None]
  - ANXIETY [None]
